FAERS Safety Report 13301589 (Version 2)
Quarter: 2017Q2

REPORT INFORMATION
  Report Type: Spontaneous
  Country: US (occurrence: US)
  Receive Date: 20170307
  Receipt Date: 20170426
  Transmission Date: 20170830
  Serious: No
  Sender: FDA-Public Use
  Company Number: US-VIIV HEALTHCARE LIMITED-US2017GSK031511

PATIENT
  Sex: Male

DRUGS (1)
  1. ZIDOVUDINE CAPSULE [Suspect]
     Active Substance: ZIDOVUDINE
     Indication: HIV INFECTION
     Dosage: 300 MG, BID
     Route: 048
     Dates: start: 1999, end: 2017

REACTIONS (1)
  - Blood creatine phosphokinase increased [Recovered/Resolved]
